FAERS Safety Report 10262469 (Version 1)
Quarter: 2014Q2

REPORT INFORMATION
  Report Type: Spontaneous
  Country: BR (occurrence: BR)
  Receive Date: 20140626
  Receipt Date: 20140626
  Transmission Date: 20141212
  Serious: Yes (Other)
  Sender: FDA-Public Use
  Company Number: PHHY2014BR078912

PATIENT
  Age: 56 Year
  Sex: Female

DRUGS (2)
  1. TRILEPTAL [Suspect]
     Dosage: UNK UKN, UNK
  2. TAZOCIN [Suspect]
     Dosage: UNK UKN, UNK
     Dates: start: 20140609

REACTIONS (8)
  - Epilepsy [Unknown]
  - Deep vein thrombosis [Unknown]
  - Astrocytoma [Unknown]
  - Drug hypersensitivity [Unknown]
  - Skin reaction [Unknown]
  - Hypertension [Unknown]
  - Rash [Recovering/Resolving]
  - Hypersensitivity [Unknown]
